FAERS Safety Report 25373048 (Version 1)
Quarter: 2025Q2

REPORT INFORMATION
  Report Type: Spontaneous
  Country: JP (occurrence: JP)
  Receive Date: 20250529
  Receipt Date: 20250529
  Transmission Date: 20250716
  Serious: Yes (Death)
  Sender: INSMED
  Company Number: JP-INSMED, INC.-2025-01894-JP

PATIENT
  Age: 70 Year
  Sex: Male
  Weight: 36.5 kg

DRUGS (1)
  1. ARIKAYCE [Suspect]
     Active Substance: AMIKACIN
     Indication: Mycobacterium avium complex infection
     Route: 055

REACTIONS (7)
  - Death [Fatal]
  - Cachexia [Unknown]
  - Somnolence [Unknown]
  - Decreased appetite [Unknown]
  - Sputum increased [Unknown]
  - Cough [Unknown]
  - Pyrexia [Unknown]
